FAERS Safety Report 18125095 (Version 1)
Quarter: 2020Q3

REPORT INFORMATION
  Report Type: Spontaneous
  Country: CN (occurrence: CN)
  Receive Date: 20200807
  Receipt Date: 20200807
  Transmission Date: 20201103
  Serious: Yes (Other)
  Sender: FDA-Public Use
  Company Number: CN-PFIZER INC-2020298717

PATIENT
  Age: 46 Year
  Sex: Female
  Weight: 55 kg

DRUGS (3)
  1. VALSARTAN/AMLODIPINE NOVARTIS [Concomitant]
     Active Substance: AMLODIPINE BESYLATE\VALSARTAN
     Indication: HYPERTENSION
     Dosage: 1 DF, 1X/DAY
     Route: 048
     Dates: start: 20200630, end: 20200701
  2. CELEBREX [Suspect]
     Active Substance: CELECOXIB
     Indication: HYPERTENSION
     Dosage: 0.2 G, 1X/DAY
     Route: 048
     Dates: start: 20200630, end: 20200701
  3. XI BI LING [Suspect]
     Active Substance: FLUNARIZINE HYDROCHLORIDE
     Indication: HYPERTENSION
     Dosage: 5 MG, 1X/DAY
     Route: 048
     Dates: start: 20200630, end: 20200701

REACTIONS (6)
  - Off label use [Unknown]
  - Peripheral swelling [Unknown]
  - Drug eruption [Unknown]
  - Swelling face [Unknown]
  - Erythema [Unknown]
  - Product use in unapproved indication [Unknown]

NARRATIVE: CASE EVENT DATE: 20200630
